FAERS Safety Report 5005001-0 (Version None)
Quarter: 2006Q1

REPORT INFORMATION
  Report Type: 
  Country: None (occurrence: None)
  Receive Date: 20060320
  Receipt Date: 20060307
  Transmission Date: 20060701
  Serious: Yes (Other)
  Sender: FDA-Public Use
  Company Number: 25558

PATIENT
  Age: 60 Year
  Sex: Female
  Weight: 61.2356 kg

DRUGS (2)
  1. DIHYDROERGOTAMINE MESYLATE [Suspect]
     Indication: MIGRAINE
     Dosage: 1MG/SQ/1X/DAY
     Route: 058
     Dates: start: 20050301
  2. VERAPAMIL [Concomitant]

REACTIONS (1)
  - INJECTION SITE REACTION [None]
